FAERS Safety Report 11835673 (Version 3)
Quarter: 2016Q3

REPORT INFORMATION
  Report Type: Spontaneous
  Country: US (occurrence: US)
  Receive Date: 20151215
  Receipt Date: 20160803
  Transmission Date: 20161109
  Serious: No
  Sender: FDA-Public Use
  Company Number: US-BAYER-2015-484337

PATIENT
  Sex: Male
  Weight: 95.25 kg

DRUGS (6)
  1. AVELOX [Suspect]
     Active Substance: MOXIFLOXACIN HYDROCHLORIDE
     Indication: LUNG INFECTION
     Dosage: 400 UNK, UNK
     Dates: start: 20131012, end: 20131022
  2. AVELOX [Suspect]
     Active Substance: MOXIFLOXACIN HYDROCHLORIDE
     Indication: LUNG INFECTION
     Dosage: 400 MG, UNK
     Dates: start: 20131205, end: 20131215
  3. PREDNISONE. [Concomitant]
     Active Substance: PREDNISONE
     Indication: SARCOIDOSIS
     Dosage: 20 MG, QD
  4. AMLODIPINE [Concomitant]
     Active Substance: AMLODIPINE BESYLATE
     Indication: HYPERTENSION
     Dosage: 5 MG, QD
  5. AVELOX [Suspect]
     Active Substance: MOXIFLOXACIN HYDROCHLORIDE
     Indication: LUNG INFECTION
     Dosage: 400 MG, UNK
     Dates: start: 20100317, end: 20100327
  6. ALBUTEROL. [Concomitant]
     Active Substance: ALBUTEROL
     Indication: SARCOIDOSIS
     Dosage: 2.5 MG, PRN

REACTIONS (6)
  - Neuropathy peripheral [None]
  - Cardiovascular disorder [None]
  - Mental disorder [None]
  - Skin injury [None]
  - Nervous system disorder [None]
  - Musculoskeletal injury [None]
